FAERS Safety Report 15350380 (Version 1)
Quarter: 2018Q3

REPORT INFORMATION
  Report Type: Spontaneous
  Country: SI (occurrence: SI)
  Receive Date: 20180905
  Receipt Date: 20180905
  Transmission Date: 20181010
  Serious: Yes (Life-Threatening, Other)
  Sender: FDA-Public Use
  Company Number: SI-TEVA-2018-SI-951476

PATIENT
  Age: 51 Year
  Sex: Male

DRUGS (4)
  1. REGLAN [Concomitant]
     Active Substance: METOCLOPRAMIDE HYDROCHLORIDE
     Dosage: IN CASE OF NAUSEA
  2. BOPACATIN 10 MG/ML [Suspect]
     Active Substance: CARBOPLATIN
     Indication: HYPOPHARYNGEAL CANCER
     Dosage: 10 MG/ML CONCENTRATE FOR SOLUTION FOR INFUSION
     Route: 042
     Dates: start: 20180809, end: 20180809
  3. PANTHOL [Concomitant]
  4. ZALDIAR [Concomitant]
     Active Substance: ACETAMINOPHEN\TRAMADOL HYDROCHLORIDE

REACTIONS (2)
  - Anaphylactic reaction [Recovered/Resolved]
  - Off label use [Recovered/Resolved]

NARRATIVE: CASE EVENT DATE: 20180809
